FAERS Safety Report 4636149-8 (Version None)
Quarter: 2005Q2

REPORT INFORMATION
  Report Type: 
  Country: None (occurrence: None)
  Receive Date: 20050414
  Receipt Date: 20050414
  Transmission Date: 20051028
  Serious: No
  Sender: FDA-Public Use
  Company Number: None

PATIENT
  Age: 31 Year
  Sex: Male

DRUGS (1)
  1. PROPOFOL [Suspect]
     Dosage: 1 X DOSE
     Dates: start: 20050412

REACTIONS (3)
  - LARYNGOSPASM [None]
  - OXYGEN SATURATION DECREASED [None]
  - RASH [None]
